FAERS Safety Report 10377096 (Version 42)
Quarter: 2017Q4

REPORT INFORMATION
  Report Type: Report from Study
  Country: CA (occurrence: CA)
  Receive Date: 20140812
  Receipt Date: 20171206
  Transmission Date: 20180320
  Serious: Yes (Hospitalization, Other)
  Sender: FDA-Public Use
  Company Number: CA-ROCHE-1259806

PATIENT
  Age: 55 Year
  Sex: Female
  Weight: 110 kg

DRUGS (22)
  1. ELTROXIN [Concomitant]
     Active Substance: LEVOTHYROXINE
  2. LANTUS [Concomitant]
     Active Substance: INSULIN GLARGINE
  3. METFORMIN [Concomitant]
     Active Substance: METFORMIN HYDROCHLORIDE
     Route: 048
  4. ASA [Concomitant]
     Active Substance: ASPIRIN
     Route: 065
  5. METOPROLOL. [Concomitant]
     Active Substance: METOPROLOL
  6. ACTEMRA [Suspect]
     Active Substance: TOCILIZUMAB
     Route: 042
     Dates: start: 20170705
  7. SEPTRA [Suspect]
     Active Substance: SULFAMETHOXAZOLE\TRIMETHOPRIM
     Indication: PRODUCT USED FOR UNKNOWN INDICATION
     Route: 065
     Dates: end: 201605
  8. CLONAZEPAM. [Concomitant]
     Active Substance: CLONAZEPAM
  9. ACTEMRA [Suspect]
     Active Substance: TOCILIZUMAB
     Indication: RHEUMATOID ARTHRITIS
     Route: 042
     Dates: start: 20130709
  10. RITUXAN [Suspect]
     Active Substance: RITUXIMAB
     Indication: PRODUCT USED FOR UNKNOWN INDICATION
     Route: 042
     Dates: start: 20100209, end: 20100223
  11. ARAVA [Suspect]
     Active Substance: LEFLUNOMIDE
     Indication: PRODUCT USED FOR UNKNOWN INDICATION
     Route: 065
  12. NAPROXEN. [Concomitant]
     Active Substance: NAPROXEN
  13. ELIQUIS [Concomitant]
     Active Substance: APIXABAN
  14. AMLODIPINE [Concomitant]
     Active Substance: AMLODIPINE BESYLATE
  15. TYLENOL WITH CODEINE [Concomitant]
     Active Substance: ACETAMINOPHEN\CODEINE PHOSPHATE
     Dosage: AS NEEDED
     Route: 065
  16. LEVOTHYROXINE. [Concomitant]
     Active Substance: LEVOTHYROXINE
  17. COVERSYL [Concomitant]
     Active Substance: PERINDOPRIL
     Route: 048
  18. ZOPICLONE [Concomitant]
     Active Substance: ZOPICLONE
     Route: 048
  19. RABEPRAZOLE [Concomitant]
     Active Substance: RABEPRAZOLE
  20. GLICLAZIDE [Concomitant]
     Active Substance: GLICLAZIDE
     Route: 048
  21. LEFLUNOMIDE. [Concomitant]
     Active Substance: LEFLUNOMIDE
  22. ATORVASTATIN [Concomitant]
     Active Substance: ATORVASTATIN

REACTIONS (40)
  - Furuncle [Recovered/Resolved]
  - Infusion related reaction [Unknown]
  - Dizziness [Not Recovered/Not Resolved]
  - Vomiting [Unknown]
  - Arterial occlusive disease [Unknown]
  - Diverticulitis [Unknown]
  - Blood iron decreased [Not Recovered/Not Resolved]
  - Pain in extremity [Recovered/Resolved]
  - Oxygen saturation decreased [Unknown]
  - Abdominal discomfort [Unknown]
  - Palpitations [Unknown]
  - Liver function test abnormal [Unknown]
  - Pruritus [Not Recovered/Not Resolved]
  - Furuncle [Not Recovered/Not Resolved]
  - Blood pressure diastolic decreased [Unknown]
  - Skin infection [Recovered/Resolved]
  - Hypotension [Unknown]
  - White blood cell count abnormal [Unknown]
  - Haemoglobin decreased [Not Recovered/Not Resolved]
  - Gastrointestinal haemorrhage [Not Recovered/Not Resolved]
  - Gastrointestinal arteriovenous malformation [Unknown]
  - Iron deficiency anaemia [Unknown]
  - Hypertension [Unknown]
  - Weight decreased [Unknown]
  - Atrial fibrillation [Unknown]
  - Musculoskeletal stiffness [Unknown]
  - Pain [Unknown]
  - Bone marrow disorder [Unknown]
  - Urinary tract infection [Unknown]
  - Musculoskeletal pain [Unknown]
  - Malaise [Unknown]
  - Gastrointestinal disorder [Recovered/Resolved]
  - Melaena [Unknown]
  - Acute myocardial infarction [Unknown]
  - Fall [Unknown]
  - Blood pressure increased [Unknown]
  - Erythema [Unknown]
  - Blood pressure systolic increased [Unknown]
  - Blood pressure diastolic abnormal [Unknown]
  - Dyspnoea exertional [Not Recovered/Not Resolved]

NARRATIVE: CASE EVENT DATE: 20130806
